FAERS Safety Report 15746982 (Version 1)
Quarter: 2018Q4

REPORT INFORMATION
  Report Type: Spontaneous
  Country: US (occurrence: US)
  Receive Date: 20181220
  Receipt Date: 20181220
  Transmission Date: 20190205
  Serious: No
  Sender: FDA-Public Use
  Company Number: US-MORTON GROVE PHARMACEUTICALS, INC.-2060455

PATIENT
  Age: 64 Year
  Sex: Female
  Weight: 56.82 kg

DRUGS (2)
  1. LEVOTHYROXINE. [Concomitant]
     Active Substance: LEVOTHYROXINE
  2. FLUTICASONE PROPIONATE NASAL SPRAY USP, 50 MCG/SPRAY [Suspect]
     Active Substance: FLUTICASONE PROPIONATE
     Indication: UPPER-AIRWAY COUGH SYNDROME
     Route: 045
     Dates: start: 20180927, end: 20181025

REACTIONS (1)
  - Anaphylactic reaction [Recovered/Resolved]
